FAERS Safety Report 5345539-X (Version None)
Quarter: 2007Q2

REPORT INFORMATION
  Report Type: 
  Country: None (occurrence: None)
  Receive Date: 20070601
  Receipt Date: 20070601
  Transmission Date: 20071010
  Serious: Yes (Other)
  Sender: FDA-Public Use
  Company Number: None

PATIENT
  Age: 54 Year
  Sex: Female
  Weight: 136.0791 kg

DRUGS (1)
  1. NIFEDICAL 60MG TEVA USA [Suspect]
     Dosage: 1 TABLET DAILT A FEW MONTHS
     Dates: start: 20070301, end: 20070529

REACTIONS (4)
  - CONSTIPATION [None]
  - PAINFUL DEFAECATION [None]
  - RECTAL ULCER [None]
  - URINE FLOW DECREASED [None]
